FAERS Safety Report 16072640 (Version 6)
Quarter: 2020Q2

REPORT INFORMATION
  Report Type: Report from Study
  Country: DE (occurrence: DE)
  Receive Date: 20190314
  Receipt Date: 20200608
  Transmission Date: 20200713
  Serious: Yes (Hospitalization, Other)
  Sender: FDA-Public Use
  Company Number: DE-UCBSA-2019009954

PATIENT
  Age: 23 Year
  Sex: Female
  Weight: 58 kg

DRUGS (3)
  1. CERTOLIZUMAB PEGOL [Suspect]
     Active Substance: CERTOLIZUMAB PEGOL
     Indication: PSORIASIS
     Dosage: 200 MILLIGRAM
     Route: 058
     Dates: start: 20180910, end: 20190215
  2. COSENTYX [Concomitant]
     Active Substance: SECUKINUMAB
     Indication: PRODUCT USED FOR UNKNOWN INDICATION
     Dosage: UNK
     Dates: start: 201707, end: 201808
  3. CERTOLIZUMAB PEGOL [Suspect]
     Active Substance: CERTOLIZUMAB PEGOL
     Indication: PSORIATIC ARTHROPATHY
     Dosage: 200 MILLIGRAM, EV 2 WEEKS(QOW)
     Route: 058

REACTIONS (5)
  - Nephritis [Recovered/Resolved]
  - Maternal exposure during pregnancy [Unknown]
  - Pyelonephritis [Recovered/Resolved]
  - Maternal exposure during breast feeding [Unknown]
  - Kidney congestion [Not Recovered/Not Resolved]

NARRATIVE: CASE EVENT DATE: 20180910
